FAERS Safety Report 7612751-6 (Version None)
Quarter: 2011Q2

REPORT INFORMATION
  Report Type: 
  Country: None (occurrence: None)
  Receive Date: 20110629
  Receipt Date: 20110621
  Transmission Date: 20111010
  Serious: Yes (Other)
  Sender: FDA-Public Use
  Company Number: CA-145187

PATIENT
  Sex: Female

DRUGS (1)
  1. WINRHO [Suspect]
     Dosage: 300 UG TOTAL
     Dates: start: 19960526, end: 19960526

REACTIONS (1)
  - HEPATITIS C [None]
